FAERS Safety Report 14660609 (Version 3)
Quarter: 2018Q2

REPORT INFORMATION
  Report Type: Spontaneous
  Country: DE (occurrence: DE)
  Receive Date: 20180320
  Receipt Date: 20180601
  Transmission Date: 20180711
  Serious: Yes (Other)
  Sender: FDA-Public Use
  Company Number: DE-PFIZER INC-2018111298

PATIENT
  Age: 32 Year
  Sex: Female
  Weight: 65 kg

DRUGS (3)
  1. FOLSAEURE [Concomitant]
     Active Substance: FOLIC ACID
     Indication: PROPHYLAXIS OF NEURAL TUBE DEFECT
     Dosage: UNK
     Route: 048
  2. PARACETAMOL [Concomitant]
     Active Substance: ACETAMINOPHEN
     Indication: PYREXIA
     Dosage: 1000 MG, DAILY  (3000 [MG/D ]/ INITIAL 2000MG/D, DOSAGE INCREASE TO 3000MG/D FROM GW 19+0)
     Route: 048
  3. LEVETIRACETAM. [Suspect]
     Active Substance: LEVETIRACETAM
     Indication: EPILEPSY
     Dosage: 3000 [MG/D ]/ INITIAL 2000MG/D, DOSAGE INCREASE TO 3000MG/D FROM GW 19+0
     Route: 048
     Dates: start: 20160915, end: 20170430

REACTIONS (1)
  - Foetal death [Not Recovered/Not Resolved]
